FAERS Safety Report 4929249-6 (Version None)
Quarter: 2006Q1

REPORT INFORMATION
  Report Type: 
  Country: None (occurrence: None)
  Receive Date: 20060223
  Receipt Date: 20060207
  Transmission Date: 20060701
  Serious: Yes (Hospitalization)
  Sender: FDA-Public Use
  Company Number: 2005BI005110

PATIENT
  Age: 47 Year
  Sex: Female
  Weight: 52.1637 kg

DRUGS (2)
  1. AVONEX [Suspect]
     Indication: MULTIPLE SCLEROSIS
     Dosage: 30 UIG;QW;IM
     Route: 030
     Dates: start: 19990201
  2. AVONEX [Suspect]
     Indication: MULTIPLE SCLEROSIS
     Dosage: 30 UG;QW;IM
     Route: 030
     Dates: start: 19990201

REACTIONS (12)
  - CYSTITIS [None]
  - DIARRHOEA [None]
  - FUNGAL INFECTION [None]
  - HERPES SIMPLEX [None]
  - INFECTION [None]
  - INFLUENZA LIKE ILLNESS [None]
  - MICTURITION URGENCY [None]
  - POLLAKIURIA [None]
  - SKIN DISCOLOURATION [None]
  - VISUAL DISTURBANCE [None]
  - VOMITING [None]
  - WEIGHT FLUCTUATION [None]
